FAERS Safety Report 12651347 (Version 1)
Quarter: 2016Q3

REPORT INFORMATION
  Report Type: Spontaneous
  Country: GB (occurrence: GB)
  Receive Date: 20160815
  Receipt Date: 20160815
  Transmission Date: 20161109
  Serious: Yes (Hospitalization, Other)
  Sender: FDA-Public Use
  Company Number: GB-VELOXIS PHARMACEUTICALS-1056309

PATIENT
  Age: 59 Year
  Sex: Male

DRUGS (2)
  1. ENVARSUS XR [Suspect]
     Active Substance: TACROLIMUS
     Indication: IMMUNOSUPPRESSION
     Route: 048
  2. ADOPORT [Suspect]
     Active Substance: TACROLIMUS
     Route: 065

REACTIONS (3)
  - Renal disorder [Unknown]
  - Lower respiratory tract infection [Unknown]
  - Abdominal infection [Unknown]
